FAERS Safety Report 23742041 (Version 1)
Quarter: 2024Q2

REPORT INFORMATION
  Report Type: Other
  Country: FR (occurrence: None)
  Receive Date: 20240415
  Receipt Date: 20240415
  Transmission Date: 20240716
  Serious: Yes (Death, Other)
  Sender: FDA-Public Use
  Company Number: FR-ROCHE-3543694

PATIENT

DRUGS (2)
  1. RITUXIMAB [Suspect]
     Active Substance: RITUXIMAB
     Indication: Acquired haemophilia
     Route: 042
  2. PREDNISONE [Suspect]
     Active Substance: PREDNISONE
     Indication: Acquired haemophilia
     Route: 065

REACTIONS (8)
  - Sepsis [Fatal]
  - Pneumonia [Fatal]
  - Haematological infection [Fatal]
  - Diabetes mellitus [Unknown]
  - Mental disorder [Unknown]
  - Cytopenia [Unknown]
  - Haemorrhage [Unknown]
  - Urinary tract infection [Unknown]
